FAERS Safety Report 18120689 (Version 1)
Quarter: 2020Q3

REPORT INFORMATION
  Report Type: Spontaneous
  Country: US (occurrence: US)
  Receive Date: 20200806
  Receipt Date: 20200806
  Transmission Date: 20201103
  Serious: Yes (Disabling, Other)
  Sender: FDA-Public Use
  Company Number: US-PURDUE-USA-2020-0160167

PATIENT
  Sex: Male

DRUGS (3)
  1. FENTANYL. [Suspect]
     Active Substance: FENTANYL
     Indication: SPINAL OPERATION
     Dosage: UNK
     Route: 062
  2. OXYCODONE HYDROCHLORIDE (SIMILAR TO NDA 22?272) [Suspect]
     Active Substance: OXYCODONE HYDROCHLORIDE
     Indication: SPINAL OPERATION
     Dosage: UNK
     Route: 048
  3. MORPHINE SULFATE (SIMILAR TO NDA 19?516) [Suspect]
     Active Substance: MORPHINE SULFATE
     Indication: SPINAL OPERATION
     Dosage: UNK
     Route: 048

REACTIONS (6)
  - Back pain [Unknown]
  - Sciatic nerve injury [Unknown]
  - Imprisonment [Unknown]
  - Disability [Unknown]
  - Drug dependence [Unknown]
  - Drug tolerance [Unknown]

NARRATIVE: CASE EVENT DATE: 2010
